FAERS Safety Report 16947282 (Version 1)
Quarter: 2019Q4

REPORT INFORMATION
  Report Type: Report from Study
  Country: US (occurrence: US)
  Receive Date: 20191022
  Receipt Date: 20191022
  Transmission Date: 20200122
  Serious: No
  Sender: FDA-Public Use
  Company Number: US-BECTON DICKINSON-2018BDN00439

PATIENT
  Sex: Female
  Weight: 124.72 kg

DRUGS (3)
  1. CHLORAPREP [Suspect]
     Active Substance: CHLORHEXIDINE GLUCONATE\ISOPROPYL ALCOHOL
     Indication: INFECTION PROPHYLAXIS
     Route: 061
  2. TREPROSTINIL SODIUM [Suspect]
     Active Substance: TREPROSTINIL SODIUM
     Indication: PULMONARY ARTERIAL HYPERTENSION
     Dosage: 0.042 ?G/KG
     Route: 042
     Dates: start: 20160603
  3. ADEMPAS [Concomitant]
     Active Substance: RIOCIGUAT

REACTIONS (2)
  - Rash [Unknown]
  - Pruritus [Unknown]
